FAERS Safety Report 7935346-3 (Version None)
Quarter: 2011Q4

REPORT INFORMATION
  Report Type: 
  Country: None (occurrence: None)
  Receive Date: 20111122
  Receipt Date: 20111107
  Transmission Date: 20120403
  Serious: Yes (Other)
  Sender: FDA-Public Use
  Company Number: BR-ABBOTT-11P-020-0856990-00

PATIENT
  Sex: Female
  Weight: 53 kg

DRUGS (2)
  1. HUMIRA [Suspect]
     Indication: PSORIASIS
     Dosage: ONCE
     Dates: start: 20110801
  2. HUMIRA [Suspect]

REACTIONS (4)
  - DEPRESSION [None]
  - CONFUSIONAL STATE [None]
  - ANXIETY [None]
  - INSOMNIA [None]
